FAERS Safety Report 7320583-1 (Version None)
Quarter: 2011Q1

REPORT INFORMATION
  Report Type: 
  Country: None (occurrence: None)
  Receive Date: 20110228
  Receipt Date: 20110217
  Transmission Date: 20110831
  Serious: Yes (Hospitalization)
  Sender: FDA-Public Use
  Company Number: DE-ROCHE-663599

PATIENT
  Sex: Female
  Weight: 62 kg

DRUGS (8)
  1. RAMIPRIL [Concomitant]
     Route: 048
  2. TAXOL [Concomitant]
     Dosage: 12 APPLICATIONS WEEKLY IN THE PAST
     Route: 042
  3. GABAPENTIN [Concomitant]
     Route: 048
  4. TAXOL [Concomitant]
     Route: 042
     Dates: start: 20090911
  5. AROMASIN [Concomitant]
  6. ZOMETA [Concomitant]
  7. BEVACIZUMAB [Suspect]
     Dosage: LAST APPLICATION PRIOR TO THE EVENT ON 25-SEP-2009
     Route: 042
     Dates: start: 20090911
  8. BISOPROLOL FUMARATE [Concomitant]
     Route: 048

REACTIONS (4)
  - GENERAL PHYSICAL HEALTH DETERIORATION [None]
  - ENTEROVESICAL FISTULA [None]
  - URINARY TRACT INFECTION [None]
  - HERPES ZOSTER [None]
